FAERS Safety Report 4691518-5 (Version None)
Quarter: 2005Q2

REPORT INFORMATION
  Report Type: 
  Country: None (occurrence: None)
  Receive Date: 20050608
  Receipt Date: 20040804
  Transmission Date: 20051028
  Serious: Yes (Other)
  Sender: FDA-Public Use
  Company Number: 376872

PATIENT
  Age: 17 Year
  Sex: Male
  Weight: 95.3 kg

DRUGS (3)
  1. ACCUTANE [Suspect]
     Dosage: ORAL
     Route: 048
     Dates: start: 19970615
  2. PENICILLIN V POTASSIUM [Concomitant]
  3. SODIUM SULAMYD OPHTHALMIC SOLUTION (SULFACETAMIDE SODIUM) [Concomitant]

REACTIONS (10)
  - ABDOMINAL DISCOMFORT [None]
  - ABDOMINAL PAIN [None]
  - ABDOMINAL PAIN UPPER [None]
  - CROHN'S DISEASE [None]
  - DIARRHOEA [None]
  - DYSPEPSIA [None]
  - FLATULENCE [None]
  - GASTRITIS [None]
  - NAUSEA [None]
  - VOMITING [None]
